FAERS Safety Report 6114880-5 (Version None)
Quarter: 2009Q1

REPORT INFORMATION
  Report Type: 
  Country: None (occurrence: None)
  Receive Date: 20090313
  Receipt Date: 20090302
  Transmission Date: 20090719
  Serious: Yes (Other)
  Sender: FDA-Public Use
  Company Number: PHHY2009FR07903

PATIENT
  Sex: Female

DRUGS (2)
  1. LESCOL [Suspect]
     Indication: HYPERCHOLESTEROLAEMIA
     Dosage: 40 MG/DAY
     Dates: start: 20080701, end: 20080801
  2. CRESTOR [Suspect]
     Dosage: UNK

REACTIONS (3)
  - PARALYSIS [None]
  - SENSORY LOSS [None]
  - TENOSYNOVITIS STENOSANS [None]
